FAERS Safety Report 8348854-0 (Version None)
Quarter: 2012Q2

REPORT INFORMATION
  Report Type: 
  Country: None (occurrence: None)
  Receive Date: 20120508
  Receipt Date: 20120425
  Transmission Date: 20120825
  Serious: Yes (Life-Threatening, Hospitalization, Other)
  Sender: FDA-Public Use
  Company Number: AUR-APL-2012-02036

PATIENT
  Age: 43 Year
  Sex: Male

DRUGS (4)
  1. LISINOPRIL [Suspect]
     Indication: HYPERTENSION
  2. CLONIDINE [Suspect]
     Indication: HYPERTENSION
  3. SIMVASTATIN [Suspect]
     Indication: DYSLIPIDAEMIA
  4. IBUPROFEN [Suspect]
     Indication: BACK PAIN
     Dosage: (400 MG, 8 HOURS AS REQUIRED)

REACTIONS (10)
  - OEDEMA PERIPHERAL [None]
  - HEPATOTOXICITY [None]
  - GRANULOMATOUS LIVER DISEASE [None]
  - JAUNDICE [None]
  - ASCITES [None]
  - LIVER DISORDER [None]
  - HEPATIC FAILURE [None]
  - FATIGUE [None]
  - HEPATOMEGALY [None]
  - RENAL TUBULAR NECROSIS [None]
